FAERS Safety Report 12354017 (Version 1)
Quarter: 2016Q2

REPORT INFORMATION
  Report Type: Report from Study
  Country: GB (occurrence: GB)
  Receive Date: 20160511
  Receipt Date: 20160511
  Transmission Date: 20160815
  Serious: Yes (Hospitalization, Other)
  Sender: FDA-Public Use
  Company Number: GB-AMGEN-GBRSL2016012082

PATIENT
  Sex: Female

DRUGS (2)
  1. ARANESP [Suspect]
     Active Substance: DARBEPOETIN ALFA
     Indication: PRODUCT USED FOR UNKNOWN INDICATION
     Dosage: 30 MUG, UNK
     Route: 065
  2. IRON [Concomitant]
     Active Substance: IRON
     Route: 065

REACTIONS (4)
  - Hip arthroplasty [Unknown]
  - Hip fracture [Unknown]
  - Cardiac disorder [Unknown]
  - Pruritus [Unknown]
